FAERS Safety Report 7588688-8 (Version None)
Quarter: 2011Q3

REPORT INFORMATION
  Report Type: 
  Country: None (occurrence: None)
  Receive Date: 20110705
  Receipt Date: 20110622
  Transmission Date: 20111222
  Serious: Yes (Hospitalization, Other)
  Sender: FDA-Public Use
  Company Number: US-ELI_LILLY_AND_COMPANY-US201106008617

PATIENT
  Sex: Female

DRUGS (1)
  1. FORTEO [Suspect]
     Indication: OSTEOPOROSIS
     Dosage: 20 UG, QD
     Dates: start: 20110301

REACTIONS (7)
  - FALL [None]
  - LUNG DISORDER [None]
  - POSTURE ABNORMAL [None]
  - ASPERGILLOSIS [None]
  - HAEMOPTYSIS [None]
  - DYSPNOEA [None]
  - PRODUCTIVE COUGH [None]
